FAERS Safety Report 11755168 (Version 1)
Quarter: 2015Q4

REPORT INFORMATION
  Report Type: Spontaneous
  Country: US (occurrence: US)
  Receive Date: 20151119
  Receipt Date: 20151119
  Transmission Date: 20160304
  Serious: Yes (Other)
  Sender: FDA-Public Use
  Company Number: US-BANPHARM-20154416

PATIENT
  Age: 79 Year
  Sex: Male

DRUGS (1)
  1. BEXAROTENE 75 MG [Suspect]
     Active Substance: BEXAROTENE
     Indication: MYCOSIS FUNGOIDES
     Dosage: 300 MG, QD,
     Route: 048
     Dates: start: 201510, end: 20151106

REACTIONS (4)
  - Neoplasm progression [Unknown]
  - Lymphadenopathy [Unknown]
  - Product substitution issue [None]
  - Drug ineffective [Unknown]

NARRATIVE: CASE EVENT DATE: 2015
